FAERS Safety Report 6298391-2 (Version None)
Quarter: 2009Q3

REPORT INFORMATION
  Report Type: 
  Country: None (occurrence: None)
  Receive Date: 20090805
  Receipt Date: 20090723
  Transmission Date: 20100115
  Serious: Yes (Hospitalization)
  Sender: FDA-Public Use
  Company Number: PHHY2009FR03195

PATIENT
  Sex: Male

DRUGS (3)
  1. NISISCO [Suspect]
     Dosage: 80/12.5 MG
     Route: 048
     Dates: end: 20081113
  2. PARIET [Suspect]
     Dosage: 20 MG DAILY
     Route: 048
     Dates: end: 20081202
  3. CRESTOR [Suspect]
     Dosage: 5 MG

REACTIONS (3)
  - DERMATITIS PSORIASIFORM [None]
  - ECZEMA [None]
  - EOSINOPHIL COUNT INCREASED [None]
